FAERS Safety Report 16154176 (Version 1)
Quarter: 2019Q2

REPORT INFORMATION
  Report Type: Spontaneous
  Country: US (occurrence: US)
  Receive Date: 20190403
  Receipt Date: 20190403
  Transmission Date: 20190711
  Serious: No
  Sender: FDA-Public Use
  Company Number: US-TEVA-2019-US-1021981

PATIENT
  Sex: Female

DRUGS (1)
  1. TRI-LO-SPRINTEC [Suspect]
     Active Substance: ETHINYL ESTRADIOL\NORGESTIMATE
     Indication: CONTRACEPTION
     Dosage: DOSE STRENGTHS NORGESTIMATE 0.18; 0.215; 0.250 AND ETHINYL ESTRADIOL TABLET 0.25; 0.035.
     Route: 065
     Dates: start: 20190228

REACTIONS (2)
  - Vomiting [Unknown]
  - Product dose omission [Unknown]

NARRATIVE: CASE EVENT DATE: 20190304
